FAERS Safety Report 7065314-8 (Version None)
Quarter: 2010Q4

REPORT INFORMATION
  Report Type: 
  Country: None (occurrence: None)
  Receive Date: 20101027
  Receipt Date: 20101012
  Transmission Date: 20110411
  Serious: Yes (Hospitalization, Other)
  Sender: FDA-Public Use
  Company Number: GB-BAYER-201042552GPV

PATIENT
  Age: 68 Year
  Sex: Female

DRUGS (8)
  1. RIVAROXABAN [Interacting]
     Indication: THROMBOSIS PROPHYLAXIS
     Route: 048
     Dates: start: 20101002, end: 20101003
  2. ASPIRIN [Suspect]
     Indication: CARDIOVASCULAR DISORDER
     Route: 048
     Dates: end: 20101003
  3. IBUPROFEN [Interacting]
     Indication: POSTOPERATIVE ANALGESIA
     Dosage: AS USED: 200 MG
     Route: 048
     Dates: start: 20101003, end: 20101003
  4. ATENOLOL [Concomitant]
     Indication: PRODUCT USED FOR UNKNOWN INDICATION
  5. CO-CODAMOL [Concomitant]
     Indication: PRODUCT USED FOR UNKNOWN INDICATION
  6. LEVOTHYROXINE SODIUM [Concomitant]
     Indication: PRODUCT USED FOR UNKNOWN INDICATION
  7. MIRTAZAPINE [Concomitant]
     Indication: PRODUCT USED FOR UNKNOWN INDICATION
  8. RAMIPRIL [Concomitant]
     Indication: PRODUCT USED FOR UNKNOWN INDICATION

REACTIONS (3)
  - HYPOTENSION [None]
  - OESOPHAGITIS HAEMORRHAGIC [None]
  - UPPER GASTROINTESTINAL HAEMORRHAGE [None]
